FAERS Safety Report 6326551-0 (Version None)
Quarter: 2009Q3

REPORT INFORMATION
  Report Type: 
  Country: None (occurrence: None)
  Receive Date: 20090825
  Receipt Date: 20090817
  Transmission Date: 20100115
  Serious: Yes (Hospitalization, Other)
  Sender: FDA-Public Use
  Company Number: US-AMGEN-QUU360624

PATIENT
  Sex: Male

DRUGS (1)
  1. ENBREL [Suspect]
     Indication: RHEUMATOID ARTHRITIS
     Route: 058

REACTIONS (6)
  - MENINGITIS VIRAL [None]
  - OSTEOPOROSIS [None]
  - PAIN [None]
  - SCIATICA [None]
  - SCOLIOSIS [None]
  - SPINAL COLUMN STENOSIS [None]
